FAERS Safety Report 6276526-5 (Version None)
Quarter: 2009Q3

REPORT INFORMATION
  Report Type: 
  Country: None (occurrence: None)
  Receive Date: 20090720
  Receipt Date: 20090527
  Transmission Date: 20100115
  Serious: Yes (Death, Other)
  Sender: FDA-Public Use
  Company Number: USA-2007-0029106

PATIENT
  Age: 17 Year
  Sex: Female

DRUGS (1)
  1. MS CONTIN [Suspect]
     Indication: DRUG ABUSE
     Dosage: 400 MG, DAILY, ORAL
     Route: 048
     Dates: start: 20070809, end: 20070809

REACTIONS (4)
  - DRUG ABUSE [None]
  - MALAISE [None]
  - OVERDOSE [None]
  - UNRESPONSIVE TO STIMULI [None]
